FAERS Safety Report 9259554 (Version 3)
Quarter: 2014Q2

REPORT INFORMATION
  Report Type: Spontaneous
  Country: US (occurrence: US)
  Receive Date: 20130429
  Receipt Date: 20140401
  Transmission Date: 20141212
  Serious: No
  Sender: FDA-Public Use
  Company Number: US-ASTRAZENECA-2013SE27735

PATIENT
  Age: 753 Month
  Sex: Female

DRUGS (21)
  1. NEXIUM [Suspect]
     Indication: GASTROOESOPHAGEAL REFLUX DISEASE
     Route: 048
     Dates: start: 2007, end: 201303
  2. NEXIUM [Suspect]
     Indication: GASTROOESOPHAGEAL REFLUX DISEASE
     Route: 048
     Dates: start: 2007
  3. NEXIUM [Suspect]
     Indication: GASTROOESOPHAGEAL REFLUX DISEASE
     Route: 048
     Dates: start: 20071214
  4. NEXIUM [Suspect]
     Indication: GASTROOESOPHAGEAL REFLUX DISEASE
     Route: 048
     Dates: start: 200803, end: 201301
  5. PREVACID [Concomitant]
     Dates: start: 200309
  6. TUMS [Concomitant]
  7. LISINOPRIL [Concomitant]
  8. TOPROL XL [Concomitant]
  9. FOSOMAX [Concomitant]
  10. LIPITOR [Concomitant]
  11. ZOLOFT [Concomitant]
  12. ASPIRIN [Concomitant]
  13. VITAMIN D [Concomitant]
  14. FISH OIL [Concomitant]
  15. FLAXSEED OIL [Concomitant]
  16. B COMPLEX [Concomitant]
  17. NAPROXEN [Concomitant]
     Dosage: TWO TIMES A DAY
  18. DIFLUCAN [Concomitant]
     Route: 048
     Dates: start: 20090401
  19. ESTROGEN [Concomitant]
     Dates: start: 20080222
  20. OMEPRAZOLE [Concomitant]
     Route: 048
     Dates: start: 20051228
  21. CLARITINE [Concomitant]
     Route: 048
     Dates: start: 20080225

REACTIONS (14)
  - Anxiety [Unknown]
  - Bone disorder [Unknown]
  - Calcium deficiency [Unknown]
  - Cataract [Unknown]
  - Foot fracture [Recovered/Resolved]
  - Osteopenia [Unknown]
  - Osteoporosis [Unknown]
  - Pain [Unknown]
  - Renal failure [Unknown]
  - Swelling [Unknown]
  - Bone fragmentation [Unknown]
  - Osteoarthritis [Unknown]
  - Impaired healing [Unknown]
  - Depression [Unknown]
